FAERS Safety Report 5405451-4 (Version None)
Quarter: 2007Q3

REPORT INFORMATION
  Report Type: 
  Country: None (occurrence: None)
  Receive Date: 20070803
  Receipt Date: 20070726
  Transmission Date: 20080115
  Serious: Yes (Other)
  Sender: FDA-Public Use
  Company Number: DE-PFIZER INC-2007061695

PATIENT
  Age: 67 Year
  Sex: Male

DRUGS (5)
  1. LYRICA [Suspect]
     Route: 048
  2. BISOPROLOL FUMARATE [Concomitant]
  3. METFORMIN HCL [Concomitant]
  4. VALSARTAN [Concomitant]
  5. AMLODIPINE [Concomitant]

REACTIONS (2)
  - CARBON DIOXIDE INCREASED [None]
  - RESPIRATORY FAILURE [None]
